FAERS Safety Report 9512029 (Version 1)
Quarter: 2013Q1

REPORT INFORMATION
  Report Type: Spontaneous
  Country: US (occurrence: None)
  Receive Date: 20130305
  Receipt Date: 20130305
  Transmission Date: 20140127
  Serious: Yes (Other)
  Sender: FDA-Public Use
  Company Number: 163-21880-12010118

PATIENT
  Age: 85 Year
  Sex: Female
  Weight: 76.66 kg

DRUGS (12)
  1. REVLIMID [Suspect]
     Indication: MYELODYSPLASTIC SYNDROME
     Dosage: 1 IN 1 D
     Route: 048
     Dates: start: 20110103
  2. METHOCARBAMOL (METHOCARBAMOL) (UNKNOWN) [Concomitant]
  3. NEXIUM (ESOMEPRAZOLE) (UNKNOWN) [Concomitant]
  4. PRAVASTATIN (PRAVASTATIN) (UNKNOWN) [Concomitant]
  5. ASA (ACETYLSALIC ACID) (UNKOWN) [Concomitant]
  6. HYDROCODONE (HYDROCODONE) (UNKNOWN) [Concomitant]
  7. CALCIUM (CALCIUM) (UNKNOWN) [Concomitant]
  8. GLIPIZIDE (GLIPIZIDE) (UNKNOWN) [Concomitant]
  9. SPIRONOLACTONE (SPIRONOLACTONE) (UNKNOWN) [Concomitant]
  10. FOLIC ACID (FOLIC ACID) (UNKNOWN) [Concomitant]
  11. BENADRYL (DIPHENHYDRAMINE) (UNKNOWN) [Concomitant]
  12. LOVENOX (HEPARIN-FRACTION, SODIUM SALT) (INJECTION) [Concomitant]

REACTIONS (5)
  - Thrombosis [None]
  - Urticaria [None]
  - Oedema peripheral [None]
  - Decreased appetite [None]
  - Nausea [None]
